FAERS Safety Report 9782582 (Version 2)
Quarter: 2014Q1

REPORT INFORMATION
  Report Type: Report from Study
  Country: NL (occurrence: NL)
  Receive Date: 20131226
  Receipt Date: 20140109
  Transmission Date: 20141002
  Serious: Yes (Other)
  Sender: FDA-Public Use
  Company Number: PHHY2013NL151847

PATIENT
  Age: 71 Year
  Sex: Male

DRUGS (4)
  1. ZOMETA [Suspect]
     Indication: PROSTATE CANCER METASTATIC
     Dosage: 4 MG/100 ML, ONCE PER 4 WEEKS
     Route: 042
  2. ZOMETA [Suspect]
     Dosage: 4 MG/100 ML, ONCE PER 4 WEEKS
     Route: 042
     Dates: start: 20120216
  3. ZOMETA [Suspect]
     Dosage: 4 MG/100 ML, ONCE PER 4 WEEKS
     Route: 042
     Dates: start: 20131024
  4. ZOMETA [Suspect]
     Dosage: 4 MG/100 ML, ONCE PER 4 WEEKS
     Route: 042
     Dates: start: 20131122

REACTIONS (1)
  - Terminal state [Unknown]
